FAERS Safety Report 17198865 (Version 1)
Quarter: 2019Q4

REPORT INFORMATION
  Report Type: Spontaneous
  Country: US (occurrence: US)
  Receive Date: 20191225
  Receipt Date: 20191225
  Transmission Date: 20200122
  Serious: Yes (Hospitalization, Other)
  Sender: FDA-Public Use
  Company Number: US-TEVA-2019-US-1155900

PATIENT
  Age: 56 Year
  Sex: Female

DRUGS (3)
  1. COPAXONE [Suspect]
     Active Substance: GLATIRAMER ACETATE
     Indication: MULTIPLE SCLEROSIS
     Dosage: FORM STRENGTH: UNKNOWN; BEEN ON COPAXONE FOR ABOUT 20 YEARS
     Route: 065
  2. XANAX [Concomitant]
     Active Substance: ALPRAZOLAM
     Route: 065
  3. CHLOROHYDRATE [Suspect]
     Active Substance: CHLORAL HYDRATE
     Route: 065
     Dates: start: 201910

REACTIONS (10)
  - Chest pain [Unknown]
  - Depression [Unknown]
  - Hemiparesis [Recovered/Resolved]
  - Anaphylactic reaction [Unknown]
  - Dyspnoea [Unknown]
  - Dysphagia [Unknown]
  - Tremor [Unknown]
  - Gait inability [Recovered/Resolved]
  - Anxiety [Unknown]
  - Hypersensitivity [Unknown]

NARRATIVE: CASE EVENT DATE: 201910
